FAERS Safety Report 4371178-3 (Version None)
Quarter: 2004Q2

REPORT INFORMATION
  Report Type: 
  Country: None (occurrence: None)
  Receive Date: 20040604
  Receipt Date: 20040525
  Transmission Date: 20050107
  Serious: Yes (Other)
  Sender: FDA-Public Use
  Company Number: US-ROCHE-369062

PATIENT
  Age: 46 Year
  Sex: Female

DRUGS (6)
  1. KLONOPIN [Suspect]
     Indication: DEPRESSION
     Route: 065
  2. LEXAPRO [Suspect]
     Indication: DEPRESSION
     Route: 048
     Dates: start: 20040401, end: 20040422
  3. LEXAPRO [Suspect]
     Route: 048
     Dates: start: 20040423, end: 20040513
  4. LASIX [Concomitant]
  5. KCL TAB [Concomitant]
  6. MULTI-VITAMIN [Concomitant]

REACTIONS (1)
  - ELECTROCARDIOGRAM QT PROLONGED [None]
